FAERS Safety Report 22274570 (Version 1)
Quarter: 2023Q2

REPORT INFORMATION
  Report Type: Other
  Country: CN (occurrence: CN)
  Receive Date: 20230502
  Receipt Date: 20230502
  Transmission Date: 20230721
  Serious: Yes (Other)
  Sender: FDA-Public Use
  Company Number: CN-002147023-NVSC2023CN092876

PATIENT
  Age: 63 Year
  Sex: Female

DRUGS (4)
  1. RANIBIZUMAB [Suspect]
     Active Substance: RANIBIZUMAB
     Indication: Retinal vein occlusion
     Dosage: UNK, QMO
     Route: 065
     Dates: start: 202206
  2. RANIBIZUMAB [Suspect]
     Active Substance: RANIBIZUMAB
     Dosage: UNK, QMO
     Route: 065
  3. RANIBIZUMAB [Suspect]
     Active Substance: RANIBIZUMAB
     Dosage: UNK, QMO
     Route: 065
  4. RANIBIZUMAB [Suspect]
     Active Substance: RANIBIZUMAB
     Dosage: UNK, QMO
     Route: 065
     Dates: end: 202303

REACTIONS (2)
  - Macular oedema [Not Recovered/Not Resolved]
  - Condition aggravated [Not Recovered/Not Resolved]

NARRATIVE: CASE EVENT DATE: 20230301
